FAERS Safety Report 8250789-9 (Version None)
Quarter: 2012Q2

REPORT INFORMATION
  Report Type: 
  Country: None (occurrence: None)
  Receive Date: 20120402
  Receipt Date: 20120323
  Transmission Date: 20120825
  Serious: Yes (Hospitalization)
  Sender: FDA-Public Use
  Company Number: NL-MEDIMMUNE-MEDI-0014088

PATIENT
  Sex: Female
  Weight: 8.55 kg

DRUGS (4)
  1. DOMPERIDONE [Concomitant]
  2. SYNAGIS [Suspect]
     Route: 030
     Dates: start: 20111129, end: 20111227
  3. RANITIDINE HCL [Concomitant]
  4. SYNAGIS [Suspect]
     Indication: BRONCHOPULMONARY DYSPLASIA
     Route: 030
     Dates: start: 20110905, end: 20111102

REACTIONS (4)
  - MALAISE [None]
  - DYSPNOEA [None]
  - VIRAL INFECTION [None]
  - COUGH [None]
